FAERS Safety Report 6141473-6 (Version None)
Quarter: 2009Q2

REPORT INFORMATION
  Report Type: 
  Country: None (occurrence: None)
  Receive Date: 20090402
  Receipt Date: 20090325
  Transmission Date: 20091009
  Serious: Yes (Death)
  Sender: FDA-Public Use
  Company Number: BR-ASTRAZENECA-2008UW18301

PATIENT
  Age: 32160 Day
  Sex: Female
  Weight: 73 kg

DRUGS (4)
  1. FASLODEX [Suspect]
     Indication: BREAST CANCER FEMALE
     Dosage: 250MG
     Route: 030
     Dates: start: 20060518, end: 20070718
  2. ZOMETA [Concomitant]
     Indication: METASTASIS
     Route: 042
     Dates: start: 20061129, end: 20070718
  3. OSCAL D [Concomitant]
     Indication: METASTASIS
     Route: 048
     Dates: start: 20061129, end: 20070718
  4. LENTARON [Concomitant]

REACTIONS (3)
  - ACUTE MYOCARDIAL INFARCTION [None]
  - ANGINA PECTORIS [None]
  - DEATH [None]
